FAERS Safety Report 12975948 (Version 2)
Quarter: 2016Q4

REPORT INFORMATION
  Report Type: Spontaneous
  Country: FR (occurrence: FR)
  Receive Date: 20161125
  Receipt Date: 20161130
  Transmission Date: 20170207
  Serious: Yes (Hospitalization)
  Sender: FDA-Public Use
  Company Number: FR-ASTRAZENECA-2016SF25213

PATIENT
  Age: 40 Year
  Sex: Male

DRUGS (6)
  1. XEROQUEL [Suspect]
     Active Substance: QUETIAPINE FUMARATE
     Indication: ANXIETY
     Route: 048
     Dates: start: 2016, end: 201611
  2. XEROQUEL [Suspect]
     Active Substance: QUETIAPINE FUMARATE
     Indication: DEPRESSION
     Route: 048
     Dates: start: 2016, end: 201611
  3. XEROQUEL [Suspect]
     Active Substance: QUETIAPINE FUMARATE
     Indication: DELIRIUM
     Route: 048
     Dates: start: 2016, end: 201611
  4. XEROQUEL [Suspect]
     Active Substance: QUETIAPINE FUMARATE
     Indication: INSOMNIA
     Route: 048
     Dates: start: 2016, end: 201611
  5. STILNOX [Concomitant]
     Active Substance: ZOLPIDEM TARTRATE
  6. HALDOL [Concomitant]
     Active Substance: HALOPERIDOL

REACTIONS (5)
  - Product use issue [Recovered/Resolved]
  - Renal failure [Recovering/Resolving]
  - Rhabdomyolysis [Recovering/Resolving]
  - Fall [Recovered/Resolved]
  - Off label use [Recovered/Resolved]

NARRATIVE: CASE EVENT DATE: 2016
